FAERS Safety Report 24761812 (Version 2)
Quarter: 2024Q4

REPORT INFORMATION
  Report Type: Spontaneous
  Country: US (occurrence: US)
  Receive Date: 20241221
  Receipt Date: 20241224
  Transmission Date: 20250115
  Serious: No
  Sender: ABBVIE
  Company Number: US-ABBVIE-6055979

PATIENT
  Age: 27 Year
  Sex: Female
  Weight: 76 kg

DRUGS (5)
  1. LILETTA [Suspect]
     Active Substance: LEVONORGESTREL
     Indication: Product used for unknown indication
     Dosage: TIME INTERVAL: AS NECESSARY
     Route: 015
     Dates: start: 20241028, end: 20241216
  2. FLUCONAZOLE [Concomitant]
     Active Substance: FLUCONAZOLE
     Indication: Product used for unknown indication
  3. MOMETASONE [Concomitant]
     Active Substance: MOMETASONE
     Indication: Product used for unknown indication
     Dosage: 0.1% TOPICAL OINTMENT
  4. NYSTATIN\TRIAMCINOLONE [Concomitant]
     Active Substance: NYSTATIN\TRIAMCINOLONE
     Indication: Product used for unknown indication
     Dosage: 100,000 UNIT/G 0.1% TOPICAL CREAM
  5. TRANEXAMIC ACID [Concomitant]
     Active Substance: TRANEXAMIC ACID
     Indication: Product used for unknown indication

REACTIONS (1)
  - Device expulsion [Recovered/Resolved]

NARRATIVE: CASE EVENT DATE: 20241216
